FAERS Safety Report 12541299 (Version 3)
Quarter: 2016Q3

REPORT INFORMATION
  Report Type: Spontaneous
  Country: GB (occurrence: GB)
  Receive Date: 20160708
  Receipt Date: 20160816
  Transmission Date: 20161109
  Serious: Yes (Other)
  Sender: FDA-Public Use
  Company Number: GB-TEVA-673525ACC

PATIENT
  Age: 49 Year
  Sex: Female

DRUGS (7)
  1. SEROXAT [Suspect]
     Active Substance: PAROXETINE HYDROCHLORIDE
     Indication: PANIC ATTACK
     Dates: start: 1997, end: 2005
  2. PAROXETINE. [Suspect]
     Active Substance: PAROXETINE
     Indication: PRODUCT USED FOR UNKNOWN INDICATION
     Dosage: 20 MILLIGRAM DAILY;
     Route: 065
     Dates: start: 19950403
  3. PAXIL [Suspect]
     Active Substance: PAROXETINE HYDROCHLORIDE
     Indication: PANIC ATTACK
     Dosage: 20 MG, UNK
     Route: 065
     Dates: start: 199504, end: 2005
  4. TIBOLONE [Concomitant]
     Active Substance: TIBOLONE
     Indication: MENOPAUSE
     Dosage: 2.5 MG, 1D
     Dates: start: 20040809
  5. SEROXAT [Suspect]
     Active Substance: PAROXETINE HYDROCHLORIDE
     Indication: PRODUCT USED FOR UNKNOWN INDICATION
     Dates: start: 19970320, end: 20050121
  6. DIAZEPAM. [Concomitant]
     Active Substance: DIAZEPAM
     Indication: PHOBIA OF FLYING
     Dosage: UNK
     Dates: start: 19810731
  7. SEROXAT [Suspect]
     Active Substance: PAROXETINE HYDROCHLORIDE
     Dates: start: 199504

REACTIONS (56)
  - Depressed mood [Unknown]
  - Influenza like illness [Unknown]
  - Depression [Unknown]
  - Disturbance in attention [Unknown]
  - Anxiety [Unknown]
  - Tearfulness [Unknown]
  - Asthenia [Unknown]
  - Apathy [Unknown]
  - Psychiatric symptom [Unknown]
  - Fatigue [Unknown]
  - Stress [Unknown]
  - Headache [Unknown]
  - Vision blurred [Unknown]
  - Throat tightness [Unknown]
  - Middle insomnia [Unknown]
  - Muscular weakness [Unknown]
  - Palpitations [Unknown]
  - Aura [Unknown]
  - Agoraphobia [Unknown]
  - Tinnitus [Unknown]
  - Weight increased [Unknown]
  - Change of bowel habit [Unknown]
  - Muscle tightness [Unknown]
  - Hyperacusis [Unknown]
  - Panic attack [Unknown]
  - Hyperhidrosis [Unknown]
  - Chest discomfort [Unknown]
  - Photopsia [Unknown]
  - Migraine [Unknown]
  - Withdrawal syndrome [Unknown]
  - Balance disorder [Unknown]
  - Condition aggravated [Unknown]
  - Disorientation [Unknown]
  - Crying [Unknown]
  - Decreased appetite [Unknown]
  - Weight decreased [Unknown]
  - Lethargy [Unknown]
  - Vertigo [Unknown]
  - Dyskinesia [Unknown]
  - Paraesthesia [Unknown]
  - Mood swings [Unknown]
  - Fear [Unknown]
  - Metamorphopsia [Unknown]
  - Amnesia [Unknown]
  - Ear discomfort [Unknown]
  - Irritability [Unknown]
  - Dizziness [Unknown]
  - Feeling abnormal [Unknown]
  - Pain in extremity [Unknown]
  - Suicidal ideation [Unknown]
  - Malaise [Unknown]
  - Abnormal dreams [Unknown]
  - Quality of life decreased [Unknown]
  - Neuralgia [Unknown]
  - Pruritus [Unknown]
  - Discomfort [Unknown]

NARRATIVE: CASE EVENT DATE: 20040809
